FAERS Safety Report 4794564-6 (Version None)
Quarter: 2005Q3

REPORT INFORMATION
  Report Type: 
  Country: None (occurrence: None)
  Receive Date: 20050914
  Receipt Date: 20041206
  Transmission Date: 20060218
  Serious: Yes (Death)
  Sender: FDA-Public Use
  Company Number: 163-20785-04120199

PATIENT
  Age: 57 Year
  Sex: Male

DRUGS (1)
  1. THALOMID [Suspect]
     Indication: MYELOFIBROSIS
     Dosage: 100 MG, DAILY,ORAL
     Route: 048
     Dates: start: 20040802, end: 20040101

REACTIONS (4)
  - BONE MARROW DEPRESSION [None]
  - DEATH [None]
  - DISEASE PROGRESSION [None]
  - SEPSIS [None]
